FAERS Safety Report 7231248-9 (Version None)
Quarter: 2011Q1

REPORT INFORMATION
  Report Type: 
  Country: None (occurrence: None)
  Receive Date: 20110118
  Receipt Date: 20110118
  Transmission Date: 20110831
  Serious: Yes (Other)
  Sender: FDA-Public Use
  Company Number: D0069576A

PATIENT
  Sex: Male

DRUGS (2)
  1. PIRIBEDIL [Suspect]
     Route: 048
     Dates: start: 20101001
  2. REQUIP [Suspect]
     Route: 048
     Dates: start: 20080101, end: 20101001

REACTIONS (3)
  - SUDDEN ONSET OF SLEEP [None]
  - FALL [None]
  - DISORIENTATION [None]
